FAERS Safety Report 4586697-4 (Version None)
Quarter: 2005Q1

REPORT INFORMATION
  Report Type: 
  Country: None (occurrence: None)
  Receive Date: 20050214
  Receipt Date: 20050201
  Transmission Date: 20050727
  Serious: Yes (Hospitalization)
  Sender: FDA-Public Use
  Company Number: CIP05000240

PATIENT
  Age: 82 Year
  Sex: Female

DRUGS (2)
  1. ACTONEL [Suspect]
     Indication: OSTEOPOROSIS
     Dosage: 35 MG ONCE ONLY, ORAL
     Route: 048
     Dates: start: 20041209, end: 20041209
  2. DRUG NOS [Concomitant]

REACTIONS (9)
  - ASCITES [None]
  - BONE PAIN [None]
  - FATIGUE [None]
  - GASTROINTESTINAL DISORDER [None]
  - HEPATIC FUNCTION ABNORMAL [None]
  - LOSS OF CONSCIOUSNESS [None]
  - OEDEMA [None]
  - RENAL IMPAIRMENT [None]
  - VOMITING [None]
